FAERS Safety Report 6676300-1 (Version None)
Quarter: 2010Q1

REPORT INFORMATION
  Report Type: 
  Country: None (occurrence: None)
  Receive Date: 20100331
  Receipt Date: 20090708
  Transmission Date: 20100710
  Serious: Yes (Life-Threatening, Hospitalization)
  Sender: FDA-Public Use
  Company Number: 2009217298

PATIENT
  Age: 85 Year
  Sex: Male
  Weight: 87.2 kg

DRUGS (1)
  1. SUTENT [Suspect]
     Indication: RENAL CELL CARCINOMA
     Dosage: 25 MG, 1X/DAY, ORAL
     Route: 048
     Dates: start: 20090106, end: 20090112

REACTIONS (1)
  - THROMBOCYTOPENIA [None]
